FAERS Safety Report 5703540-8 (Version None)
Quarter: 2008Q2

REPORT INFORMATION
  Report Type: 
  Country: None (occurrence: None)
  Receive Date: 20080409
  Receipt Date: 20080327
  Transmission Date: 20081010
  Serious: Yes (Hospitalization)
  Sender: FDA-Public Use
  Company Number: 2008008051

PATIENT
  Age: 51 Year
  Sex: Male
  Weight: 92.5 kg

DRUGS (8)
  1. BENADRYL [Suspect]
     Dates: end: 20080109
  2. CLOZAPINE [Suspect]
     Dosage: 200 MG, ORAL
     Route: 048
     Dates: start: 20070501, end: 20080109
  3. COGENTIN [Suspect]
     Dates: end: 20080109
  4. THORAZINE [Suspect]
     Dates: end: 20080109
  5. HALDOL [Suspect]
     Dosage: INTRAMUSCULAR
     Route: 030
  6. ATIVAN [Suspect]
  7. ENALAPRIL MALEATE [Concomitant]
  8. DYAZIDE [Concomitant]

REACTIONS (5)
  - DECREASED APPETITE [None]
  - FAECALOMA [None]
  - INTESTINAL OBSTRUCTION [None]
  - LETHARGY [None]
  - ORAL INTAKE REDUCED [None]
